FAERS Safety Report 9922324 (Version 1)
Quarter: 2014Q1

REPORT INFORMATION
  Report Type: Spontaneous
  Country: US (occurrence: US)
  Receive Date: 20140225
  Receipt Date: 20140225
  Transmission Date: 20141002
  Serious: Yes (Hospitalization, Other)
  Sender: FDA-Public Use
  Company Number: US-JNJFOC-20140211350

PATIENT
  Age: 62 Year
  Sex: Female
  Weight: 58.97 kg

DRUGS (6)
  1. ULTRAM [Suspect]
     Indication: FACIAL PAIN
     Dosage: MAYBE 2 OR 4 TIMES PER DAY
     Route: 048
     Dates: start: 201210, end: 201301
  2. ELAVIL [Interacting]
     Indication: NEURALGIA
     Route: 065
     Dates: end: 2013
  3. TEGRETOL [Interacting]
     Indication: NEURALGIA
     Route: 048
     Dates: start: 2011, end: 2013
  4. PERCOCET [Interacting]
     Indication: PROCEDURAL PAIN
     Route: 048
     Dates: start: 2012, end: 2013
  5. PERCOCET [Interacting]
     Indication: FACIAL PAIN
     Route: 048
     Dates: start: 2012, end: 2013
  6. BOTOX [Interacting]
     Indication: PRODUCT USED FOR UNKNOWN INDICATION
     Route: 050
     Dates: start: 201210, end: 201301

REACTIONS (3)
  - Serotonin syndrome [Not Recovered/Not Resolved]
  - Adverse event [Unknown]
  - Drug interaction [Unknown]
